FAERS Safety Report 8128029 (Version 5)
Quarter: 2013Q2

REPORT INFORMATION
  Report Type: Spontaneous
  Country: US (occurrence: US)
  Receive Date: 20110909
  Receipt Date: 20130529
  Transmission Date: 20140414
  Serious: No
  Sender: FDA-Public Use
  Company Number: US-BIOGENIDEC-2011BI033750

PATIENT
  Age: 41 Year
  Sex: Female

DRUGS (2)
  1. TYSABRI [Suspect]
     Indication: MULTIPLE SCLEROSIS
     Route: 042
     Dates: start: 20110825, end: 20110825
  2. AVONEX [Concomitant]
     Indication: MULTIPLE SCLEROSIS
     Route: 030
     Dates: start: 20051221

REACTIONS (7)
  - Headache [Unknown]
  - Migraine [Recovered/Resolved]
  - Abasia [Recovered/Resolved]
  - Faecal incontinence [Recovered/Resolved]
  - Crying [Unknown]
  - Adverse drug reaction [Unknown]
  - Infusion related reaction [Recovered/Resolved]
